FAERS Safety Report 22304423 (Version 1)
Quarter: 2023Q2

REPORT INFORMATION
  Report Type: Spontaneous
  Country: AT (occurrence: AT)
  Receive Date: 20230510
  Receipt Date: 20230510
  Transmission Date: 20230721
  Serious: Yes (Other)
  Sender: FDA-Public Use
  Company Number: AT-Accord-355558

PATIENT
  Age: 70 Year
  Sex: Female

DRUGS (5)
  1. TRASTUZUMAB [Suspect]
     Active Substance: TRASTUZUMAB
     Indication: Product used for unknown indication
     Dosage: UNK FOUR CYCLES
     Route: 065
     Dates: start: 202008
  2. DOCETAXEL [Suspect]
     Active Substance: DOCETAXEL
     Indication: Product used for unknown indication
     Dosage: UNK FOUR CYCLES
     Route: 065
     Dates: start: 202008
  3. FLUOROURACIL [Suspect]
     Active Substance: FLUOROURACIL
  4. LEUCOVORIN [Suspect]
     Active Substance: LEUCOVORIN
  5. OXALIPLATIN [Suspect]
     Active Substance: OXALIPLATIN

REACTIONS (3)
  - Renal failure [Unknown]
  - Diarrhoea [Unknown]
  - Off label use [Unknown]
